FAERS Safety Report 4515678-1 (Version None)
Quarter: 2004Q4

REPORT INFORMATION
  Report Type: 
  Country: None (occurrence: None)
  Receive Date: 20041123
  Receipt Date: 20041115
  Transmission Date: 20050328
  Serious: Yes (Hospitalization)
  Sender: FDA-Public Use
  Company Number: 2004-01879

PATIENT
  Age: 34 Year
  Sex: Male

DRUGS (1)
  1. IMMUCYST (BCG - IT (CONNAUGHT)), AVENTIS PASTEUR LTD, LOT NOT REP, I6 [Suspect]
     Indication: BLADDER CANCER
     Dosage: B.IN., BLADDER
     Dates: start: 20040305, end: 20040409

REACTIONS (4)
  - INFLAMMATION [None]
  - MANIA [None]
  - PYREXIA [None]
  - REITER'S SYNDROME [None]
